FAERS Safety Report 5834606-X (Version None)
Quarter: 2008Q3

REPORT INFORMATION
  Report Type: 
  Country: None (occurrence: None)
  Receive Date: 20080805
  Receipt Date: 20080723
  Transmission Date: 20090109
  Serious: Yes (Hospitalization)
  Sender: FDA-Public Use
  Company Number: GB-ELI_LILLY_AND_COMPANY-GB200807004817

PATIENT
  Age: 79 Year
  Sex: Female
  Weight: 57 kg

DRUGS (3)
  1. CYMBALTA [Suspect]
     Indication: DEPRESSION
     Dosage: 60 MG, UNKNOWN
     Route: 048
     Dates: start: 20080621, end: 20080628
  2. QUETIAPINE FUMARATE [Concomitant]
     Indication: DEMENTIA
     Dosage: 150 MG, DAILY (1/D)
     Route: 048
     Dates: start: 20060101
  3. RIVASTIGMINE TARTRATE [Concomitant]
     Indication: DEMENTIA
     Dosage: 3 MG, 21/1 DAYS
     Route: 048
     Dates: start: 20070108

REACTIONS (2)
  - FALL [None]
  - LOSS OF CONSCIOUSNESS [None]
